FAERS Safety Report 11505929 (Version 1)
Quarter: 2015Q3

REPORT INFORMATION
  Report Type: Spontaneous
  Country: US (occurrence: US)
  Receive Date: 20150915
  Receipt Date: 20150915
  Transmission Date: 20151125
  Serious: No
  Sender: FDA-Public Use
  Company Number: US-ROCHE-767405

PATIENT
  Age: 35 Year
  Sex: Male

DRUGS (3)
  1. PEGASYS [Suspect]
     Active Substance: PEGINTERFERON ALFA-2A
     Indication: HEPATITIS C
     Dosage: FORM: PRE-FILLED SYRINGE
     Route: 058
  2. RIBASPHERE [Suspect]
     Active Substance: RIBAVIRIN
     Indication: HEPATITIS C
     Dosage: IN DIVIDED DOSES
     Route: 065
  3. FLUOXETINE [Concomitant]
     Active Substance: FLUOXETINE\FLUOXETINE HYDROCHLORIDE
     Indication: DEPRESSION
     Route: 065

REACTIONS (11)
  - White blood cell count decreased [Unknown]
  - Chest discomfort [Unknown]
  - Influenza like illness [Unknown]
  - Insomnia [Unknown]
  - Cold sweat [Unknown]
  - Fatigue [Recovering/Resolving]
  - Pyrexia [Unknown]
  - Nausea [Unknown]
  - Rash pruritic [Unknown]
  - Platelet count decreased [Unknown]
  - Productive cough [Unknown]

NARRATIVE: CASE EVENT DATE: 20110319
